FAERS Safety Report 13394404 (Version 4)
Quarter: 2017Q2

REPORT INFORMATION
  Report Type: Spontaneous
  Country: US (occurrence: US)
  Receive Date: 20170402
  Receipt Date: 20170531
  Transmission Date: 20170830
  Serious: Yes (Other)
  Sender: FDA-Public Use
  Company Number: US-AMGEN-USASP2017043928

PATIENT
  Sex: Female

DRUGS (5)
  1. ENBREL [Suspect]
     Active Substance: ETANERCEPT
     Indication: ARTHRITIS
     Dosage: 50 MG, QWK ON FRIDAYS
     Route: 065
  2. LEVEMIR [Concomitant]
     Active Substance: INSULIN DETEMIR
     Dosage: UNK
  3. ENBREL [Suspect]
     Active Substance: ETANERCEPT
     Indication: PSORIATIC ARTHROPATHY
     Dosage: 50 MG, QWK ON FRIDAYS
     Route: 065
     Dates: start: 2009
  4. ENBREL [Suspect]
     Active Substance: ETANERCEPT
     Indication: PSORIASIS
  5. ENBREL [Suspect]
     Active Substance: ETANERCEPT
     Indication: SCOLIOSIS

REACTIONS (6)
  - Off label use [Unknown]
  - Mobility decreased [Not Recovered/Not Resolved]
  - Scoliosis [Unknown]
  - Prosthesis implantation [Unknown]
  - Visual impairment [Unknown]
  - Dysphonia [Unknown]
